FAERS Safety Report 6702095-9 (Version None)
Quarter: 2010Q2

REPORT INFORMATION
  Report Type: 
  Country: None (occurrence: None)
  Receive Date: 20100427
  Receipt Date: 20100412
  Transmission Date: 20101027
  Serious: Yes (Hospitalization)
  Sender: FDA-Public Use
  Company Number: 2009AC000118

PATIENT
  Age: 39 Year
  Sex: 0

DRUGS (71)
  1. DIGOXIN [Suspect]
     Dosage: 250 MCG; PO; 250 MCG; QD; PO
     Route: 048
     Dates: start: 19940501, end: 20060312
  2. DIGOXIN [Suspect]
     Dosage: 250 MCG; PO; 250 MCG; QD; PO
     Route: 048
     Dates: start: 20020531, end: 20060312
  3. KLOR-CON [Concomitant]
  4. THEOPHYLLINE [Concomitant]
  5. GLUCOVANCE [Concomitant]
  6. SEREVENT [Concomitant]
  7. ACETAZOLAMIDE [Concomitant]
  8. FUROSEMIDE [Concomitant]
  9. SYNTHROID [Concomitant]
  10. NEPHRO-VITE [Concomitant]
  11. WELLBUTRIN [Concomitant]
  12. LOTENSIN [Concomitant]
  13. SINGULAIR [Concomitant]
  14. ALBUTEROL [Concomitant]
  15. ATROVENT [Concomitant]
  16. IBUPROFEN [Concomitant]
  17. MUPIROCIN 2% OINTMENT [Concomitant]
  18. BENAZEPRIL HYDROCHLORIDE [Concomitant]
  19. LEVOTHYROXINE SODIUM [Concomitant]
  20. PHENYTOIN SODIUM [Concomitant]
  21. ASPIRIN [Concomitant]
  22. FERROUS SULFATE TAB [Concomitant]
  23. ACTOS [Concomitant]
  24. RENAGEL [Concomitant]
  25. HYDROXYZINE [Concomitant]
  26. IMNICEF [Concomitant]
  27. IPRATROPIUM BR [Concomitant]
  28. COMBIVENT [Concomitant]
  29. MAGNESIUM OXIDE [Concomitant]
  30. NICOTINE [Concomitant]
  31. WARFARIN SODIUM [Concomitant]
  32. POLYETHYLENE GLYCOL [Concomitant]
  33. PREVACID [Concomitant]
  34. METOCLOPRAMIDE HYDROCHLORIDE [Concomitant]
  35. FLUCONAZOLE [Concomitant]
  36. SULFAMETHOXAZOLE AND TRIMETHOPRIM [Concomitant]
  37. AMMONIUM LACTATE [Concomitant]
  38. DOXYCYLCINE HYCLATE [Concomitant]
  39. IPRATR-ALBUTEROL [Concomitant]
  40. SPIRIVA [Concomitant]
  41. METHYLPREDNISOLONE [Concomitant]
  42. AMMONIUM LACTATE [Concomitant]
  43. PROAIR HFA [Concomitant]
  44. LASIX [Concomitant]
  45. ....................... [Concomitant]
  46. .............. [Concomitant]
  47. ............... [Concomitant]
  48. DIAMOX SRC [Concomitant]
  49. DILANTIN [Concomitant]
  50. ...................... [Concomitant]
  51. MAGNESIUM OXIDE [Concomitant]
  52. ............... [Concomitant]
  53. KIONEX [Concomitant]
  54. RENAGEL [Concomitant]
  55. ............... [Concomitant]
  56. .......... [Concomitant]
  57. CALCIUM [Concomitant]
  58. ........... [Concomitant]
  59. OXYGEN [Concomitant]
  60. NITROGLYCERIN [Concomitant]
  61. GLYBURIDE [Concomitant]
  62. TAGAMET [Concomitant]
  63. PEPCID [Concomitant]
  64. TYLENOL-500 [Concomitant]
  65. ZAROXOLYN [Concomitant]
  66. LANTUS [Concomitant]
  67. HUMALOG [Concomitant]
  68. KAYEXALATE [Concomitant]
  69. MIRALAX [Concomitant]
  70. BENICAR [Concomitant]
  71. ADVAIR DISKUS 100/50 [Concomitant]

REACTIONS (28)
  - ACUTE RESPIRATORY FAILURE [None]
  - ANAEMIA [None]
  - ASTHMA [None]
  - BRONCHITIS CHRONIC [None]
  - BURNING SENSATION [None]
  - CHRONIC RESPIRATORY FAILURE [None]
  - COLONIC POLYP [None]
  - CONSTIPATION [None]
  - CONVULSION [None]
  - DIVERTICULUM [None]
  - DIZZINESS [None]
  - ECONOMIC PROBLEM [None]
  - GASTRITIS [None]
  - HEADACHE [None]
  - HYPERCAPNIA [None]
  - HYPOGLYCAEMIA [None]
  - IRRITABLE BOWEL SYNDROME [None]
  - LEFT VENTRICULAR HYPERTROPHY [None]
  - LUNG INFILTRATION [None]
  - MULTIPLE INJURIES [None]
  - MYOCARDIAL ISCHAEMIA [None]
  - OEDEMA PERIPHERAL [None]
  - PNEUMONIA STREPTOCOCCAL [None]
  - RENAL CYST [None]
  - RENAL FAILURE ACUTE [None]
  - THERAPEUTIC AGENT TOXICITY [None]
  - VISION BLURRED [None]
  - WEIGHT DECREASED [None]
